FAERS Safety Report 17873763 (Version 1)
Quarter: 2020Q2

REPORT INFORMATION
  Report Type: Other
  Country: CA (occurrence: CA)
  Receive Date: 20200609
  Receipt Date: 20200609
  Transmission Date: 20200714
  Serious: Yes (Other)
  Sender: FDA-Public Use
  Company Number: CA-APOTEX-2020AP011525

PATIENT
  Age: 65 Year
  Sex: Female

DRUGS (2)
  1. ACETAMINOPHEN. [Suspect]
     Active Substance: ACETAMINOPHEN
     Indication: PRODUCT USED FOR UNKNOWN INDICATION
     Dosage: UNK
     Route: 065
  2. GD AZITHROMYCIN [Suspect]
     Active Substance: AZITHROMYCIN
     Indication: INFECTION
     Dosage: 250 MG, UNK
     Route: 065

REACTIONS (5)
  - Vomiting [Unknown]
  - Aphonia [Unknown]
  - Cough [Unknown]
  - Abdominal pain lower [Unknown]
  - Intentional product use issue [Unknown]
